FAERS Safety Report 23204589 (Version 2)
Quarter: 2023Q4

REPORT INFORMATION
  Report Type: Spontaneous
  Country: CN (occurrence: CN)
  Receive Date: 20231120
  Receipt Date: 20231128
  Transmission Date: 20240110
  Serious: Yes (Life-Threatening, Other)
  Sender: FDA-Public Use
  Company Number: CN-002147023-NVSC2023CN245506

PATIENT
  Age: 87 Year
  Sex: Male
  Weight: 70 kg

DRUGS (2)
  1. CARBAMAZEPINE [Suspect]
     Active Substance: CARBAMAZEPINE
     Indication: Migraine
     Dosage: 0.2 G, QD
     Route: 048
     Dates: start: 20231004, end: 20231022
  2. CARBAMAZEPINE [Suspect]
     Active Substance: CARBAMAZEPINE
     Indication: Trigeminal neuralgia

REACTIONS (9)
  - Dizziness [Recovering/Resolving]
  - Splenic rupture [Unknown]
  - Shock haemorrhagic [Unknown]
  - Heart sounds abnormal [Unknown]
  - Face injury [Unknown]
  - Oedema peripheral [Unknown]
  - Fall [Unknown]
  - Abdominal pain [Unknown]
  - Product use in unapproved indication [Unknown]

NARRATIVE: CASE EVENT DATE: 20231008
